FAERS Safety Report 9420053 (Version 3)
Quarter: 2013Q3

REPORT INFORMATION
  Report Type: Spontaneous
  Country: US (occurrence: US)
  Receive Date: 20130725
  Receipt Date: 20130906
  Transmission Date: 20140515
  Serious: Yes (Other)
  Sender: FDA-Public Use
  Company Number: US-GLAXOSMITHKLINE-A1024028A

PATIENT
  Age: 66 Year
  Sex: Female
  Weight: 119.6 kg

DRUGS (19)
  1. VOTRIENT [Suspect]
     Indication: MALIGNANT URINARY TRACT NEOPLASM
     Dosage: 800MG PER DAY
     Route: 048
     Dates: start: 20130411
  2. SIMVASTATIN [Suspect]
     Indication: PRODUCT USED FOR UNKNOWN INDICATION
     Route: 065
     Dates: end: 201307
  3. ATIVAN [Concomitant]
  4. OXYGEN [Concomitant]
  5. PRILOSEC [Concomitant]
  6. TYLENOL [Concomitant]
  7. ALBUTEROL + IPRATROPIUM BROMIDE [Concomitant]
  8. MULTIVITAMIN [Concomitant]
  9. LEXAPRO [Concomitant]
  10. CALCIUM + VITAMIN D [Concomitant]
  11. LANTUS [Concomitant]
  12. SPIRIVA [Concomitant]
  13. FIBERCON [Concomitant]
  14. LASIX [Concomitant]
  15. VICTOZA [Concomitant]
  16. QVAR [Concomitant]
  17. IRON [Concomitant]
  18. OXY-IR [Concomitant]
  19. LOFIBRA [Concomitant]

REACTIONS (10)
  - Drug-induced liver injury [Recovering/Resolving]
  - Fatigue [Recovered/Resolved]
  - Nausea [Recovered/Resolved]
  - Headache [Recovered/Resolved]
  - Transaminases increased [Recovering/Resolving]
  - Abdominal pain upper [Recovering/Resolving]
  - Muscle spasms [Recovering/Resolving]
  - Dyspnoea [Recovering/Resolving]
  - Liver function test abnormal [Recovering/Resolving]
  - Pulmonary mass [Unknown]
